FAERS Safety Report 5005864-9 (Version None)
Quarter: 2006Q2

REPORT INFORMATION
  Report Type: 
  Country: None (occurrence: None)
  Receive Date: 20060515
  Receipt Date: 20060502
  Transmission Date: 20061013
  Serious: Yes (Other)
  Sender: FDA-Public Use
  Company Number: HQWYE202205MAY06

PATIENT
  Age: 35 Year
  Sex: Female
  Weight: 79.45 kg

DRUGS (1)
  1. ADVIL [Suspect]
     Indication: BACK PAIN
     Dosage: SEE IMAGE, ORAL
     Route: 048
     Dates: start: 20060428, end: 20060429

REACTIONS (3)
  - ANAPHYLACTIC SHOCK [None]
  - HYPERSENSITIVITY [None]
  - OEDEMA PERIPHERAL [None]
